FAERS Safety Report 12517002 (Version 2)
Quarter: 2016Q3

REPORT INFORMATION
  Report Type: Report from Study
  Country: US (occurrence: US)
  Receive Date: 20160630
  Receipt Date: 20160719
  Transmission Date: 20161109
  Serious: Yes (Hospitalization)
  Sender: FDA-Public Use
  Company Number: US-ACTELION-A-NJ2016-138438

PATIENT
  Age: 66 Year
  Sex: Female

DRUGS (3)
  1. WARFARIN [Concomitant]
     Active Substance: WARFARIN
  2. TRACLEER [Suspect]
     Active Substance: BOSENTAN
     Indication: PULMONARY ARTERIAL HYPERTENSION
     Dosage: 125 MG, BID
     Route: 048
     Dates: start: 20101110
  3. REVATIO [Concomitant]
     Active Substance: SILDENAFIL CITRATE

REACTIONS (5)
  - Dyspnoea exertional [Unknown]
  - Peripheral swelling [Unknown]
  - Chest injury [Unknown]
  - Syncope [Unknown]
  - Chest pain [Unknown]
